FAERS Safety Report 25282628 (Version 1)
Quarter: 2025Q2

REPORT INFORMATION
  Report Type: Spontaneous
  Country: US (occurrence: US)
  Receive Date: 20250508
  Receipt Date: 20250508
  Transmission Date: 20250716
  Serious: Yes (Other)
  Sender: DOMPE FARMACEUTICI
  Company Number: US-FARMAPROD-202504-1166

PATIENT
  Age: 92 Year
  Sex: Female

DRUGS (6)
  1. OXERVATE [Suspect]
     Active Substance: CENEGERMIN-BKBJ
     Indication: Neurotrophic keratopathy
     Route: 047
     Dates: end: 20250403
  2. MOXIFLOXACIN [Concomitant]
     Active Substance: MOXIFLOXACIN
     Route: 047
  3. PREDNISOLONE [Concomitant]
     Active Substance: PREDNISOLONE
     Route: 047
  4. TIMOPTIC [Concomitant]
     Active Substance: TIMOLOL MALEATE
     Route: 047
  5. RHOPRESSA [Concomitant]
     Active Substance: NETARSUDIL MESYLATE
     Route: 047
  6. ZIOPTAN [Concomitant]
     Active Substance: TAFLUPROST
     Route: 047

REACTIONS (1)
  - Eye infection fungal [Recovering/Resolving]

NARRATIVE: CASE EVENT DATE: 20250403
